FAERS Safety Report 5503236-1 (Version None)
Quarter: 2007Q4

REPORT INFORMATION
  Report Type: 
  Country: None (occurrence: None)
  Receive Date: 20071031
  Receipt Date: 20071022
  Transmission Date: 20080405
  Serious: Yes (Other)
  Sender: FDA-Public Use
  Company Number: US-PFIZER INC-2005156113

PATIENT
  Sex: Male
  Weight: 113.4 kg

DRUGS (8)
  1. VIAGRA [Suspect]
     Indication: ERECTILE DYSFUNCTION
     Route: 048
  2. EFFEXOR [Concomitant]
     Route: 065
  3. LORATADINE [Concomitant]
     Route: 065
  4. GABAPENTIN [Concomitant]
     Route: 065
  5. IBUPROFEN [Concomitant]
     Route: 065
  6. ZOCOR [Concomitant]
  7. GLUCOPHAGE [Concomitant]
  8. VALSARTAN [Concomitant]

REACTIONS (6)
  - GRIP STRENGTH DECREASED [None]
  - HYPOAESTHESIA [None]
  - HYPOAESTHESIA FACIAL [None]
  - NERVE COMPRESSION [None]
  - PAIN IN EXTREMITY [None]
  - SENSORY LOSS [None]
